FAERS Safety Report 21570464 (Version 1)
Quarter: 2022Q4

REPORT INFORMATION
  Report Type: Spontaneous
  Country: US (occurrence: US)
  Receive Date: 20221109
  Receipt Date: 20221109
  Transmission Date: 20230113
  Serious: Yes (Hospitalization)
  Sender: FDA-Public Use
  Company Number: US-BAUSCH-BL-2022-024933

PATIENT
  Age: 86 Year
  Sex: Female

DRUGS (3)
  1. XIFAXAN [Suspect]
     Active Substance: RIFAXIMIN
     Indication: Hepatic encephalopathy
     Route: 048
     Dates: start: 202002
  2. LACTULOSE [Suspect]
     Active Substance: LACTULOSE
     Indication: Hepatic encephalopathy
     Dosage: STOPPED WHEN STARTING XIFAXAN
     Route: 065
  3. LACTULOSE [Suspect]
     Active Substance: LACTULOSE
     Dosage: RE-STARTED
     Route: 065

REACTIONS (5)
  - Coma [Unknown]
  - Disorientation [Unknown]
  - Abnormal behaviour [Unknown]
  - Speech disorder [Unknown]
  - Somnolence [Unknown]

NARRATIVE: CASE EVENT DATE: 20200101
